FAERS Safety Report 9409983 (Version 1)
Quarter: 2013Q3

REPORT INFORMATION
  Report Type: Spontaneous
  Country: DE (occurrence: DE)
  Receive Date: 20130719
  Receipt Date: 20130719
  Transmission Date: 20140515
  Serious: Yes (Other)
  Sender: FDA-Public Use
  Company Number: DE-INCYTE CORPORATION-2013IN001489

PATIENT
  Sex: Male

DRUGS (8)
  1. JAKAVI [Suspect]
     Indication: MYELOFIBROSIS
     Dosage: 10 MG, DAILY
     Route: 065
     Dates: start: 20130628
  2. MACROGOL [Concomitant]
  3. FENTANYL [Concomitant]
  4. RAMIPRIL [Concomitant]
  5. METOPROLOL [Concomitant]
  6. TORASEMIDE [Concomitant]
  7. NEPRESOL [Concomitant]
  8. PANTOPRAZOLE [Concomitant]

REACTIONS (1)
  - Ejection fraction decreased [Unknown]
